FAERS Safety Report 5010330-0 (Version None)
Quarter: 2006Q2

REPORT INFORMATION
  Report Type: 
  Country: None (occurrence: None)
  Receive Date: 20060404
  Receipt Date: 20051219
  Transmission Date: 20061013
  Serious: No
  Sender: FDA-Public Use
  Company Number: US200512003534

PATIENT
  Age: 60 Year
  Sex: Female

DRUGS (1)
  1. CYMBALTA [Suspect]
     Indication: DEPRESSION
     Dosage: 60 MG, ORAL
     Route: 048
     Dates: start: 20051201

REACTIONS (5)
  - DISORIENTATION [None]
  - DIZZINESS [None]
  - HEADACHE [None]
  - PARAESTHESIA [None]
  - WEIGHT INCREASED [None]
